FAERS Safety Report 25789252 (Version 2)
Quarter: 2025Q3

REPORT INFORMATION
  Report Type: Report from Study
  Country: US (occurrence: US)
  Receive Date: 20250911
  Receipt Date: 20250915
  Transmission Date: 20251020
  Serious: No
  Sender: ACADIA PHARMACEUTICALS
  Company Number: US-ACADIA PHARMACEUTICALS INC.-ACA-2025-PIM-010018

PATIENT
  Sex: Female

DRUGS (3)
  1. NUPLAZID [Suspect]
     Active Substance: PIMAVANSERIN TARTRATE
     Indication: Parkinson^s disease psychosis
     Dosage: 34 MILLIGRAM, QD (NIGHTLY)
     Route: 048
     Dates: start: 20190201
  2. BENZONATATE [Concomitant]
     Active Substance: BENZONATATE
  3. COLCHICINE [Concomitant]
     Active Substance: COLCHICINE

REACTIONS (1)
  - Product dose omission issue [Not Recovered/Not Resolved]
